FAERS Safety Report 5075368-6 (Version None)
Quarter: 2006Q3

REPORT INFORMATION
  Report Type: 
  Country: None (occurrence: None)
  Receive Date: 20060807
  Receipt Date: 20060807
  Transmission Date: 20061208
  Serious: Yes (Other)
  Sender: FDA-Public Use
  Company Number: None

PATIENT
  Sex: Female
  Weight: 63.5036 kg

DRUGS (1)
  1. BUPROPION HCL [Suspect]
     Indication: DEPRESSION
     Dosage: 150MG   1D
     Dates: start: 20060515, end: 20060601

REACTIONS (4)
  - ALCOHOL USE [None]
  - AMNESIA [None]
  - DRUG INTERACTION [None]
  - ROAD TRAFFIC ACCIDENT [None]
